FAERS Safety Report 7723694-1 (Version None)
Quarter: 2011Q3

REPORT INFORMATION
  Report Type: 
  Country: None (occurrence: None)
  Receive Date: 20110901
  Receipt Date: 20110824
  Transmission Date: 20111222
  Serious: Yes (Hospitalization, Disabling)
  Sender: FDA-Public Use
  Company Number: DK-BRACCO-000017

PATIENT
  Sex: Male

DRUGS (8)
  1. NEORECORMON [Concomitant]
  2. RAMIPRIL [Concomitant]
  3. PANTOPRAZOLE SODIUM [Concomitant]
  4. PHOS-EX [Concomitant]
  5. OMNISCAN [Suspect]
     Indication: SCAN WITH CONTRAST
     Dates: start: 20051205, end: 20051205
  6. NORVASC [Concomitant]
  7. CONTRAST MEDIA [Suspect]
     Indication: NUCLEAR MAGNETIC RESONANCE IMAGING
     Dates: start: 20030701, end: 20030701
  8. CONTRAST MEDIA [Suspect]
     Indication: RENAL TRANSPLANT
     Dates: start: 20030701, end: 20030701

REACTIONS (16)
  - HYPERAESTHESIA [None]
  - GAIT DISTURBANCE [None]
  - ARTHRALGIA [None]
  - JOINT RANGE OF MOTION DECREASED [None]
  - VASODILATATION [None]
  - PAIN IN EXTREMITY [None]
  - WHEELCHAIR USER [None]
  - PULMONARY FIBROSIS [None]
  - DYSPHAGIA [None]
  - NEPHROGENIC SYSTEMIC FIBROSIS [None]
  - LEFT VENTRICULAR DYSFUNCTION [None]
  - OEDEMA PERIPHERAL [None]
  - PULMONARY ARTERIAL PRESSURE INCREASED [None]
  - VOMITING [None]
  - ASTHENIA [None]
  - TOTAL LUNG CAPACITY DECREASED [None]
